FAERS Safety Report 5749618-4 (Version None)
Quarter: 2008Q2

REPORT INFORMATION
  Report Type: 
  Country: None (occurrence: None)
  Receive Date: 20080527
  Receipt Date: 20080519
  Transmission Date: 20081010
  Serious: Yes (Hospitalization)
  Sender: FDA-Public Use
  Company Number: US-GENENTECH-256987

PATIENT
  Sex: Male
  Weight: 61.5 kg

DRUGS (13)
  1. BLINDED ANTI-CD40 [Suspect]
     Indication: DIFFUSE LARGE B-CELL LYMPHOMA
     Dosage: 120 MG
     Route: 042
     Dates: start: 20071227, end: 20071227
  2. BLINDED PLACEBO [Suspect]
     Indication: DIFFUSE LARGE B-CELL LYMPHOMA
     Dosage: 120 MG
     Route: 042
     Dates: start: 20071227, end: 20071227
  3. BLINDED ANTI-CD40 [Suspect]
     Dosage: 240 MG, SINGLE
     Route: 042
     Dates: start: 20071230, end: 20071230
  4. BLINDED PLACEBO [Suspect]
     Dosage: 240 MG, SINGLE
     Route: 042
     Dates: start: 20071230, end: 20071230
  5. BLINDED ANTI-CD40 [Suspect]
     Dosage: 500 MG, 1/WEEK
     Route: 042
     Dates: start: 20080104, end: 20080104
  6. BLINDED PLACEBO [Suspect]
     Dosage: 500 MG, 1/WEEK
     Route: 042
     Dates: start: 20080104, end: 20080104
  7. BLINDED ANTI-CD40 [Suspect]
     Dosage: 482 MG, 1/WEEK
     Route: 042
     Dates: start: 20080122, end: 20080122
  8. BLINDED PLACEBO [Suspect]
     Dosage: 482 MG, 1/WEEK
     Route: 042
     Dates: start: 20080122, end: 20080122
  9. RITUXAN [Suspect]
     Indication: DIFFUSE LARGE B-CELL LYMPHOMA
     Dosage: 645 MG, Q3W
     Route: 042
     Dates: start: 20071226, end: 20080122
  10. ETOPOSIDE [Suspect]
     Indication: DIFFUSE LARGE B-CELL LYMPHOMA
     Dosage: 170 MG, Q3W
     Route: 042
     Dates: start: 20071228, end: 20080124
  11. ETOPOSIDE [Suspect]
     Dates: start: 20071229, end: 20071229
  12. CARBOPLATIN [Suspect]
     Indication: DIFFUSE LARGE B-CELL LYMPHOMA
     Dosage: 715 MG, Q3W
     Route: 042
     Dates: start: 20071229, end: 20080123
  13. IFOSFAMIDE [Suspect]
     Indication: DIFFUSE LARGE B-CELL LYMPHOMA
     Dosage: 8600 MG, Q3W
     Route: 042
     Dates: start: 20071229, end: 20080123

REACTIONS (3)
  - NEUTROPENIA [None]
  - ORTHOSTATIC HYPOTENSION [None]
  - THROMBOCYTOPENIA [None]
